FAERS Safety Report 5829123-7 (Version None)
Quarter: 2008Q2

REPORT INFORMATION
  Report Type: 
  Country: None (occurrence: None)
  Receive Date: 20080601
  Receipt Date: 20080207
  Transmission Date: 20081010
  Serious: No
  Sender: FDA-Public Use
  Company Number: US200802001722

PATIENT
  Age: 47 Year
  Sex: Female

DRUGS (4)
  1. BYETTA [Suspect]
     Indication: TYPE 2 DIABETES MELLITUS
     Dosage: 5 UG, 2/D, SUBCUTANEOUS
     Route: 058
     Dates: start: 20070101
  2. XANAX [Concomitant]
  3. GLUCOPHAGE [Concomitant]
  4. STARLIX [Concomitant]

REACTIONS (7)
  - HEARING IMPAIRED [None]
  - INJECTION SITE BRUISING [None]
  - INJECTION SITE PAIN [None]
  - MENIERE'S DISEASE [None]
  - NAUSEA [None]
  - VERTIGO [None]
  - VOMITING [None]
